FAERS Safety Report 17444589 (Version 1)
Quarter: 2020Q1

REPORT INFORMATION
  Report Type: Spontaneous
  Country: US (occurrence: US)
  Receive Date: 20200221
  Receipt Date: 20200221
  Transmission Date: 20200409
  Serious: No
  Sender: FDA-Public Use
  Company Number: None

PATIENT
  Age: 13 Year
  Sex: Male
  Weight: 49.95 kg

DRUGS (1)
  1. REMICADE [Suspect]
     Active Substance: INFLIXIMAB
     Indication: CROHN^S DISEASE
     Dosage: ?          OTHER FREQUENCY:EVERY 8 WEEKS;?
     Route: 042
     Dates: start: 20170401, end: 20191223

REACTIONS (1)
  - Palpitations [None]

NARRATIVE: CASE EVENT DATE: 20190701
